FAERS Safety Report 12173570 (Version 1)
Quarter: 2016Q1

REPORT INFORMATION
  Report Type: Spontaneous
  Country: US (occurrence: None)
  Receive Date: 20160311
  Receipt Date: 20160311
  Transmission Date: 20160526
  Serious: Yes (Hospitalization)
  Sender: FDA-Public Use
  Company Number: None

PATIENT
  Age: 87 Year
  Sex: Male
  Weight: 77.3 kg

DRUGS (12)
  1. ATROPINE 1% OPHTH [Concomitant]
  2. WARFARIN 2.5 MG [Suspect]
     Active Substance: WARFARIN
     Indication: ATRIAL TACHYCARDIA
     Dosage: 2.5 MG 4 TIMES A WEEK ORAL
     Route: 048
  3. MILK THISTLE [Concomitant]
     Active Substance: MILK THISTLE
  4. GLIPIZIDE. [Concomitant]
     Active Substance: GLIPIZIDE
  5. TAMSULOSIN XR [Concomitant]
  6. DIGOXIN. [Concomitant]
     Active Substance: DIGOXIN
  7. VITAMIN C [Concomitant]
     Active Substance: ASCORBIC ACID
  8. WARFARIN 5 MG [Suspect]
     Active Substance: WARFARIN
     Indication: ATRIAL TACHYCARDIA
     Route: 048
  9. AMLODIPINE [Concomitant]
     Active Substance: AMLODIPINE BESYLATE
  10. NORPACE [Concomitant]
     Active Substance: DISOPYRAMIDE PHOSPHATE
  11. LASIX [Concomitant]
     Active Substance: FUROSEMIDE
  12. TIMOPTIC 0.55 OPHTH [Concomitant]

REACTIONS (3)
  - Haematoma [None]
  - International normalised ratio increased [None]
  - Fall [None]

NARRATIVE: CASE EVENT DATE: 20151130
